FAERS Safety Report 22386528 (Version 1)
Quarter: 2023Q2

REPORT INFORMATION
  Report Type: Spontaneous
  Country: RU (occurrence: RU)
  Receive Date: 20230531
  Receipt Date: 20230531
  Transmission Date: 20230721
  Serious: Yes (Other)
  Sender: FDA-Public Use
  Company Number: RU-ROCHE-3351735

PATIENT
  Age: 43 Year
  Sex: Female

DRUGS (3)
  1. CAPECITABINE [Suspect]
     Active Substance: CAPECITABINE
     Indication: Breast cancer stage I
     Dosage: SECOND-LINE THERAPY
     Route: 048
     Dates: start: 202208, end: 202301
  2. ATEZOLIZUMAB [Suspect]
     Active Substance: ATEZOLIZUMAB
     Indication: Breast cancer stage I
     Dosage: DAYS 1 AND 15 EVERY 4 WEEKS/INTRAVENOUS DRIP
     Route: 042
     Dates: start: 202009, end: 202208
  3. PACLITAXEL [Suspect]
     Active Substance: PACLITAXEL
     Indication: Breast cancer stage I
     Dosage: DAYS 1, 8, 15
     Route: 042
     Dates: start: 202009, end: 202208

REACTIONS (8)
  - Breast cancer [Unknown]
  - Immune-mediated arthritis [Unknown]
  - Lymphadenopathy [Unknown]
  - Aspartate aminotransferase increased [Unknown]
  - Alanine aminotransferase increased [Unknown]
  - Primary hypothyroidism [Unknown]
  - Hepatitis C [Unknown]
  - Autoimmune thyroiditis [Unknown]

NARRATIVE: CASE EVENT DATE: 20220801
